FAERS Safety Report 4349145-5 (Version None)
Quarter: 2004Q2

REPORT INFORMATION
  Report Type: 
  Country: None (occurrence: None)
  Receive Date: 20040423
  Receipt Date: 20040414
  Transmission Date: 20050107
  Serious: Yes (Death, Life-Threatening, Hospitalization)
  Sender: FDA-Public Use
  Company Number: 03P-087-0244872-00

PATIENT
  Age: 1 Year
  Sex: Female
  Weight: 6.8 kg

DRUGS (6)
  1. CARTROL [Suspect]
     Indication: CARDIAC FAILURE
     Dosage: 1 MG 1 IN 1 D, PER ORAL
     Route: 048
     Dates: start: 20030325, end: 20031116
  2. CARTROL [Suspect]
     Indication: PROPHYLAXIS
     Dosage: 1 MG 1 IN 1 D, PER ORAL
     Route: 048
     Dates: start: 20030325, end: 20031116
  3. FUROSEMIDE [Concomitant]
  4. SPIRONOLACTONE [Concomitant]
  5. DIGOXIN [Concomitant]
  6. ENALAPRIL MALEATE [Concomitant]

REACTIONS (3)
  - CARDIAC ARREST [None]
  - CONVULSION [None]
  - HYPOGLYCAEMIA [None]
